FAERS Safety Report 6465786-3 (Version None)
Quarter: 2009Q4

REPORT INFORMATION
  Report Type: 
  Country: None (occurrence: None)
  Receive Date: 20091124
  Receipt Date: 20091102
  Transmission Date: 20100525
  Serious: Yes (Hospitalization, Other)
  Sender: FDA-Public Use
  Company Number: 1000009756

PATIENT
  Age: 69 Year
  Sex: Female

DRUGS (10)
  1. CITALOPRAM HYDROBROMIDE [Suspect]
     Dosage: 20 MG (20 MG)
  2. CO-CODAMOL [Suspect]
     Dosage: 30/500 (1 DOSAGE FORMS, AS REQUIRED)
  3. DICLOFENAC SODIUM [Suspect]
     Dosage: 50 MG (50 MG)
  4. DOMPERIDONE [Suspect]
     Dosage: 10 MG (10 MG)
  5. FUROSEMIDE [Suspect]
     Dosage: 20 MG (20 MG)
  6. LOPERAMIDE [Suspect]
     Dosage: 2 MG (2 MG)
  7. LOPRAZOLAM [Suspect]
     Dosage: 1 MG (1 MG, 1 IN 1 D)
  8. PROPRANOLOL [Suspect]
     Dosage: 80 MG (80 MG)
  9. RISPERIDONE [Suspect]
     Dosage: 0.5 MG (0.5 MG)
  10. ZOPICLONE [Suspect]
     Dosage: 7.5 MG (7.5 MG, 1 IN 1 D)

REACTIONS (15)
  - ABDOMINAL PAIN [None]
  - CACHEXIA [None]
  - CARDIAC MURMUR [None]
  - CHOLELITHIASIS [None]
  - CLOSTRIDIAL INFECTION [None]
  - COLON CANCER [None]
  - DECREASED APPETITE [None]
  - DEHYDRATION [None]
  - DIARRHOEA [None]
  - DUODENAL ULCER [None]
  - HAEMOGLOBIN DECREASED [None]
  - LARGE INTESTINAL ULCER [None]
  - MALAISE [None]
  - PALLOR [None]
  - VOMITING [None]
